FAERS Safety Report 4504315-8 (Version None)
Quarter: 2004Q4

REPORT INFORMATION
  Report Type: 
  Country: None (occurrence: None)
  Receive Date: 20041116
  Receipt Date: 20041116
  Transmission Date: 20050328
  Serious: Yes (Hospitalization)
  Sender: FDA-Public Use
  Company Number: None

PATIENT
  Age: 56 Year
  Sex: Male
  Weight: 102.9665 kg

DRUGS (8)
  1. WARFARIN SODIUM [Suspect]
     Indication: AORTIC STENOSIS
     Dosage: 7.5 MG M, W,F 5 MG ALL OTHER DAYS
     Dates: start: 20040316, end: 20040717
  2. WARFARIN SODIUM [Suspect]
     Indication: ATRIAL FIBRILLATION
     Dosage: 7.5 MG M, W,F 5 MG ALL OTHER DAYS
     Dates: start: 20040316, end: 20040717
  3. WARFARIN SODIUM [Suspect]
     Indication: CARDIOMYOPATHY
     Dosage: 7.5 MG M, W,F 5 MG ALL OTHER DAYS
     Dates: start: 20040316, end: 20040717
  4. ATENOLOL [Concomitant]
  5. CLOPIDOGREL BISULFATE [Concomitant]
  6. FOLIC ACID [Concomitant]
  7. MAGNESIUM OXIDE [Concomitant]
  8. THIAMINE HCL [Concomitant]

REACTIONS (1)
  - GASTROINTESTINAL HAEMORRHAGE [None]
